FAERS Safety Report 4756459-3 (Version None)
Quarter: 2005Q3

REPORT INFORMATION
  Report Type: 
  Country: None (occurrence: None)
  Receive Date: 20050830
  Receipt Date: 20050701
  Transmission Date: 20060218
  Serious: No
  Sender: FDA-Public Use
  Company Number: US-GLAXOSMITHKLINE-A0564845A

PATIENT
  Age: 65 Year
  Sex: Male

DRUGS (8)
  1. WELLBUTRIN [Suspect]
     Indication: DEPRESSION
     Dosage: 300MG PER DAY
     Route: 048
     Dates: start: 20050623
  2. SANDOSTATIN [Concomitant]
  3. KLONOPIN [Concomitant]
  4. PROZAC [Concomitant]
  5. BUSPAR [Concomitant]
  6. REMERON [Concomitant]
  7. ACIPHEX [Concomitant]
  8. DESYREL [Concomitant]

REACTIONS (4)
  - ASTHENIA [None]
  - FATIGUE [None]
  - FEELING ABNORMAL [None]
  - WEIGHT DECREASED [None]
